FAERS Safety Report 4885730-X (Version None)
Quarter: 2006Q1

REPORT INFORMATION
  Report Type: 
  Country: None (occurrence: None)
  Receive Date: 20060117
  Receipt Date: 20060109
  Transmission Date: 20060701
  Serious: Yes (Hospitalization)
  Sender: FDA-Public Use
  Company Number: FRWYE286409JAN06

PATIENT
  Sex: Female

DRUGS (2)
  1. EFFEXOR [Suspect]
     Dosage: TRANSPLACENTAL/THROUGHOUT ALL THE PREGNANCY
     Route: 064
  2. VALPROATE SODIUM [Suspect]
     Dosage: TRANSPLACENTAL/THROUGHOUT ALL THE PREGNANCY
     Route: 064

REACTIONS (11)
  - BLOOD CALCIUM INCREASED [None]
  - CONGENITAL ANOMALY [None]
  - DRUG EXPOSURE DURING PREGNANCY [None]
  - ELECTROENCEPHALOGRAM ABNORMAL [None]
  - ERYTHROSIS [None]
  - GASTROOESOPHAGEAL REFLUX DISEASE [None]
  - MUSCLE CONTRACTIONS INVOLUNTARY [None]
  - NEONATAL DISORDER [None]
  - PREMATURE BABY [None]
  - SLEEP APNOEA SYNDROME [None]
  - THERAPY NON-RESPONDER [None]
